FAERS Safety Report 23126647 (Version 1)
Quarter: 2023Q4

REPORT INFORMATION
  Report Type: Spontaneous
  Country: US (occurrence: US)
  Receive Date: 20231030
  Receipt Date: 20231030
  Transmission Date: 20240109
  Serious: No
  Sender: FDA-Public Use
  Company Number: US-009507513-2310USA008513

PATIENT
  Sex: Female

DRUGS (3)
  1. KEYTRUDA [Suspect]
     Active Substance: PEMBROLIZUMAB
     Dosage: UNK
  2. LENVATINIB MESYLATE [Suspect]
     Active Substance: LENVATINIB MESYLATE
     Dosage: DOSE DECREASED
  3. LENVATINIB MESYLATE [Suspect]
     Active Substance: LENVATINIB MESYLATE
     Dosage: UNK

REACTIONS (4)
  - Arthralgia [Unknown]
  - Abdominal mass [Unknown]
  - Pelvic mass [Unknown]
  - Product use issue [Unknown]
